FAERS Safety Report 5267619-X (Version None)
Quarter: 2007Q1

REPORT INFORMATION
  Report Type: 
  Country: None (occurrence: None)
  Receive Date: 20070316
  Receipt Date: 20070305
  Transmission Date: 20070707
  Serious: Yes (Other)
  Sender: FDA-Public Use
  Company Number: US-ELI_LILLY_AND_COMPANY-US200608000258

PATIENT
  Age: 51 Year
  Sex: Male
  Weight: 81.632 kg

DRUGS (5)
  1. ZYPREXA [Suspect]
     Dosage: 10 MG, EACH EVENING
     Route: 048
     Dates: start: 20001214, end: 20060901
  2. ZYPREXA [Suspect]
     Dosage: 15 MG, UNK
     Route: 048
     Dates: start: 20060901
  3. RISPERIDONE [Concomitant]
     Dosage: UNK, 2/D
     Dates: start: 19950622, end: 20001214
  4. ZOLOFT [Concomitant]
     Route: 048
     Dates: start: 19980301
  5. LASIX [Concomitant]
     Route: 048
     Dates: start: 20040501

REACTIONS (5)
  - CATARACT [None]
  - DIABETES MELLITUS [None]
  - RENAL FAILURE ACUTE [None]
  - RENAL FAILURE CHRONIC [None]
  - WEIGHT DECREASED [None]
